FAERS Safety Report 6203282-9 (Version None)
Quarter: 2009Q2

REPORT INFORMATION
  Report Type: 
  Country: None (occurrence: None)
  Receive Date: 20090522
  Receipt Date: 20090522
  Transmission Date: 20091009
  Serious: Yes (Hospitalization)
  Sender: FDA-Public Use
  Company Number: None

PATIENT
  Sex: Male
  Weight: 71 kg

DRUGS (10)
  1. CYTARABINE [Suspect]
     Dosage: 4180 MG
  2. DEXAMETHASONE [Suspect]
     Dosage: 100 MG
  3. ETOPOSIDE [Suspect]
     Dosage: 320 MG
  4. G-CSF (FILGRASTIM, AMGEN) [Suspect]
     Dosage: 3600 MCG
  5. IFOSFAMIDE [Suspect]
     Dosage: 8000 MG
  6. LEUCOVORIN CALCIUM [Suspect]
     Dosage: 90 MG
  7. MESNA [Suspect]
     Dosage: 6000MG
  8. METHOTREXATE [Suspect]
     Dosage: 3045 MG
  9. RITUXIMAB (MOAB C2B8 ANTI CD20, CHIMERIC) [Suspect]
     Dosage: 1550 MCG
  10. VINCRISTINE SULFATE [Suspect]
     Dosage: 2 MG

REACTIONS (5)
  - CHILLS [None]
  - HAEMORRHOIDS [None]
  - HEADACHE [None]
  - PANCYTOPENIA [None]
  - PYREXIA [None]
